FAERS Safety Report 7779252-6 (Version None)
Quarter: 2011Q3

REPORT INFORMATION
  Report Type: 
  Country: None (occurrence: None)
  Receive Date: 20110926
  Receipt Date: 20110921
  Transmission Date: 20111222
  Serious: Yes (Life-Threatening, Other)
  Sender: FDA-Public Use
  Company Number: RU-ASTRAZENECA-2011SE56657

PATIENT
  Age: 19 Year
  Sex: Female

DRUGS (1)
  1. NAROPIN [Suspect]
     Indication: ANAESTHESIA PROCEDURE
     Route: 053
     Dates: start: 20110915, end: 20110915

REACTIONS (4)
  - BLOOD PRESSURE DECREASED [None]
  - RESPIRATORY FAILURE [None]
  - LOSS OF CONSCIOUSNESS [None]
  - ANAPHYLACTIC SHOCK [None]
